FAERS Safety Report 5873312-2 (Version None)
Quarter: 2008Q3

REPORT INFORMATION
  Report Type: 
  Country: None (occurrence: None)
  Receive Date: 20080908
  Receipt Date: 20080903
  Transmission Date: 20090109
  Serious: Yes (Other)
  Sender: FDA-Public Use
  Company Number: US-ASTRAZENECA-2008UW18140

PATIENT
  Sex: Female

DRUGS (1)
  1. CRESTOR [Suspect]
     Route: 048

REACTIONS (8)
  - BLOOD GLUCOSE INCREASED [None]
  - GRIP STRENGTH DECREASED [None]
  - PAIN [None]
  - PARAESTHESIA [None]
  - RASH [None]
  - THYROID DISORDER [None]
  - THYROID NEOPLASM [None]
  - VISION BLURRED [None]
